FAERS Safety Report 7606859-9 (Version None)
Quarter: 2011Q3

REPORT INFORMATION
  Report Type: 
  Country: None (occurrence: None)
  Receive Date: 20110713
  Receipt Date: 20110708
  Transmission Date: 20111222
  Serious: Yes (Hospitalization)
  Sender: FDA-Public Use
  Company Number: US-GLAXOSMITHKLINE-A0936514A

PATIENT
  Age: 24 Year
  Sex: Female
  Weight: 71 kg

DRUGS (2)
  1. PAZOPANIB [Suspect]
     Indication: NEOPLASM
     Dosage: 450MGM2 PER DAY
     Route: 048
     Dates: start: 20110126
  2. DECADRON [Suspect]
     Indication: PAIN
     Dosage: 4MG TWICE PER DAY
     Dates: start: 20110301

REACTIONS (1)
  - PAIN [None]
